FAERS Safety Report 19202169 (Version 1)
Quarter: 2021Q2

REPORT INFORMATION
  Report Type: Spontaneous
  Country: GB (occurrence: GB)
  Receive Date: 20210430
  Receipt Date: 20210430
  Transmission Date: 20210717
  Serious: Yes (Other)
  Sender: FDA-Public Use
  Company Number: GB-DEXPHARM-20210505

PATIENT
  Age: 49 Year
  Sex: Female
  Weight: 93 kg

DRUGS (5)
  1. OMEPRAZOLE. [Suspect]
     Active Substance: OMEPRAZOLE
     Dates: start: 20210208
  2. CANDESARTAN. [Concomitant]
     Active Substance: CANDESARTAN
     Dates: start: 20201127
  3. NORTRIPTYLINE [Concomitant]
     Active Substance: NORTRIPTYLINE
     Dosage: 3 ? 4 TO BE TAKEN EACH NIGHT
     Dates: start: 20200228, end: 20210301
  4. NAPROXEN. [Interacting]
     Active Substance: NAPROXEN
     Dosage: 2 SEPARATED DOSES
     Dates: start: 20210208, end: 20210308
  5. PREGABALIN. [Concomitant]
     Active Substance: PREGABALIN
     Dosage: 2 SEPARATED DOSES
     Dates: start: 20200228, end: 20210301

REACTIONS (2)
  - Drug interaction [Unknown]
  - Palpitations [Recovered/Resolved]
